FAERS Safety Report 9168629 (Version 1)
Quarter: 2013Q1

REPORT INFORMATION
  Report Type: Spontaneous
  Country: US (occurrence: US)
  Receive Date: 20130318
  Receipt Date: 20130318
  Transmission Date: 20140127
  Serious: No
  Sender: FDA-Public Use
  Company Number: US-BAYER-2013-033301

PATIENT
  Age: 73 Year
  Sex: Female
  Weight: 58.05 kg

DRUGS (1)
  1. ALEVE [Suspect]
     Indication: ANALGESIC THERAPY
     Dosage: 2 UNK, UNK
     Route: 048
     Dates: start: 20130306, end: 20130311

REACTIONS (1)
  - Acne [Not Recovered/Not Resolved]
